FAERS Safety Report 14164315 (Version 2)
Quarter: 2017Q4

REPORT INFORMATION
  Report Type: Spontaneous
  Country: FR (occurrence: FR)
  Receive Date: 20171107
  Receipt Date: 20171127
  Transmission Date: 20180321
  Serious: Yes (Other)
  Sender: FDA-Public Use
  Company Number: FR-CONCORDIA PHARMACEUTICALS INC.-GSH201711-006290

PATIENT
  Age: 89 Year
  Sex: Female

DRUGS (4)
  1. FUROSEMIDE. [Concomitant]
     Active Substance: FUROSEMIDE
  2. DIGOXIN. [Suspect]
     Active Substance: DIGOXIN
     Route: 048
     Dates: start: 20170111, end: 20170126
  3. DIGOXIN. [Suspect]
     Active Substance: DIGOXIN
     Route: 042
  4. APIXABAN [Suspect]
     Active Substance: APIXABAN
     Dosage: ON DAY 7

REACTIONS (2)
  - Overdose [Unknown]
  - Drug interaction [Unknown]

NARRATIVE: CASE EVENT DATE: 20170124
